FAERS Safety Report 23349575 (Version 3)
Quarter: 2024Q1

REPORT INFORMATION
  Report Type: Other
  Country: DE (occurrence: DE)
  Receive Date: 20231229
  Receipt Date: 20240227
  Transmission Date: 20240410
  Serious: Yes (Hospitalization, Other)
  Sender: FDA-Public Use
  Company Number: DE-Accord-396131

PATIENT
  Age: 43 Year
  Sex: Female

DRUGS (7)
  1. CYCLOPHOSPHAMIDE [Suspect]
     Active Substance: CYCLOPHOSPHAMIDE
     Indication: Product used for unknown indication
     Dosage: 2 CYCLES
     Route: 065
  2. RITUXIMAB [Suspect]
     Active Substance: RITUXIMAB
     Indication: Autologous haematopoietic stem cell transplant
     Dosage: 1X 1000MG AS A BRIDGING THERAPY
     Route: 042
  3. UPADACITINIB [Concomitant]
     Active Substance: UPADACITINIB
     Indication: Systemic scleroderma
  4. GRANULOCYTE COLONY-STIMULATING FACTOR NOS [Concomitant]
     Active Substance: GRANULOCYTE COLONY-STIMULATING FACTOR NOS
  5. CAPTOPRIL [Concomitant]
     Active Substance: CAPTOPRIL
     Indication: Hypertension
     Dosage: HIGH-DOSE
  6. AMLODIPINE [Concomitant]
     Active Substance: AMLODIPINE BESYLATE
     Indication: Hypertension
     Dosage: HIGH-DOSE
  7. SECUKINUMAB [Concomitant]
     Active Substance: SECUKINUMAB
     Indication: Product used for unknown indication
     Dosage: 300 MG ON THE DAYS 0, 7, 14, 21, 28 AND THEN MONTHLY
     Dates: start: 202306

REACTIONS (11)
  - Systemic scleroderma [Unknown]
  - Renal failure [Unknown]
  - Loss of personal independence in daily activities [Unknown]
  - Haemolysis [Unknown]
  - Drug ineffective [Unknown]
  - Hypertension [Unknown]
  - Arthralgia [Unknown]
  - Autoimmune disorder [Unknown]
  - Musculoskeletal stiffness [Unknown]
  - Red blood cell schistocytes present [Unknown]
  - Myelosuppression [Unknown]

NARRATIVE: CASE EVENT DATE: 20230101
